FAERS Safety Report 8836223 (Version 2)
Quarter: 2012Q4

REPORT INFORMATION
  Report Type: 
  Country: FR (occurrence: FR)
  Receive Date: 20121011
  Receipt Date: 20121101
  Transmission Date: 20130627
  Serious: Yes (Hospitalization, Other)
  Sender: FDA-Public Use
  Company Number: FR-ROCHE-1144464

PATIENT
  Sex: Female

DRUGS (3)
  1. LUCENTIS [Suspect]
     Indication: AGE-RELATED MACULAR DEGENERATION
     Route: 050
     Dates: start: 20120621
  2. LUCENTIS [Suspect]
     Route: 050
     Dates: start: 20120719
  3. LUCENTIS [Suspect]
     Route: 050
     Dates: start: 20120823

REACTIONS (1)
  - Cerebrovascular accident [Unknown]
